FAERS Safety Report 6171659-6 (Version None)
Quarter: 2009Q2

REPORT INFORMATION
  Report Type: 
  Country: None (occurrence: None)
  Receive Date: 20090429
  Receipt Date: 20090422
  Transmission Date: 20091009
  Serious: Yes (Other)
  Sender: FDA-Public Use
  Company Number: GB-AVENTIS-200821798GDDC

PATIENT
  Age: 75 Year
  Sex: Female
  Weight: 53.5 kg

DRUGS (12)
  1. LANTUS [Suspect]
     Indication: TYPE 1 DIABETES MELLITUS
     Route: 058
     Dates: start: 20050415
  2. LANTUS [Suspect]
     Route: 058
     Dates: start: 20081025, end: 20081101
  3. LANTUS [Suspect]
     Route: 058
  4. BENDROFLUMETHIAZIDE [Concomitant]
     Indication: HYPERTENSION
     Route: 048
     Dates: start: 20060101
  5. CIPROFLOXACIN [Concomitant]
     Route: 048
     Dates: start: 20080818, end: 20080825
  6. CLOPIDOGREL [Concomitant]
     Route: 048
     Dates: start: 20030101
  7. DILTIAZEM HCL [Concomitant]
     Route: 048
     Dates: start: 20080829, end: 20080929
  8. DOXAZOSIN MESYLATE [Concomitant]
     Dates: start: 20070524
  9. ISOSORBIDE MONONITRATE [Concomitant]
     Route: 048
     Dates: start: 20071205
  10. LEVOTHYROXINE SODIUM [Concomitant]
     Indication: HYPOTHYROIDISM
     Dates: start: 20060101
  11. NOVORAPID [Concomitant]
     Route: 058
     Dates: start: 20040101
  12. SIMVASTATIN [Concomitant]
     Dates: start: 20071108

REACTIONS (4)
  - APTYALISM [None]
  - DYSPNOEA [None]
  - FEELING ABNORMAL [None]
  - PRODUCT QUALITY ISSUE [None]
